FAERS Safety Report 12119487 (Version 1)
Quarter: 2016Q1

REPORT INFORMATION
  Report Type: Spontaneous
  Country: US (occurrence: None)
  Receive Date: 20160225
  Receipt Date: 20160225
  Transmission Date: 20160526
  Serious: No
  Sender: FDA-Public Use
  Company Number: None

PATIENT
  Age: 92 Year
  Sex: Female
  Weight: 68.04 kg

DRUGS (1)
  1. INVANZ [Suspect]
     Active Substance: ERTAPENEM SODIUM
     Indication: SKIN ULCER
     Route: 042
     Dates: start: 20160209, end: 20160211

REACTIONS (3)
  - Therapy cessation [None]
  - Lip oedema [None]
  - Pruritus [None]

NARRATIVE: CASE EVENT DATE: 20160211
